FAERS Safety Report 8583802-X (Version None)
Quarter: 2012Q3

REPORT INFORMATION
  Report Type: 
  Country: None (occurrence: None)
  Receive Date: 20120810
  Receipt Date: 20120730
  Transmission Date: 20120928
  Serious: Yes (Other)
  Sender: FDA-Public Use
  Company Number: JP-009507513-1207JPN012858

PATIENT

DRUGS (7)
  1. PEG-INTRON [Suspect]
     Dosage: 0.725MCG/KG/WEEK
     Route: 058
     Dates: start: 20120628
  2. REBETOL [Suspect]
     Route: 048
     Dates: start: 20120628
  3. TELAVIC [Suspect]
     Indication: HEPATITIS C
     Route: 048
     Dates: start: 20120524, end: 20120620
  4. AMOBAN [Concomitant]
     Indication: INSOMNIA
     Route: 048
  5. PEG-INTRON [Suspect]
     Indication: HEPATITIS C
     Dosage: 1.5MCG/KG/WEEK
     Route: 058
     Dates: start: 20120524, end: 20120621
  6. TELAVIC [Suspect]
     Route: 048
     Dates: start: 20120621
  7. REBETOL [Suspect]
     Indication: HEPATITIS C
     Route: 048
     Dates: start: 20120524, end: 20120627

REACTIONS (3)
  - DECREASED APPETITE [None]
  - VOMITING [None]
  - NAUSEA [None]
